FAERS Safety Report 21625245 (Version 4)
Quarter: 2023Q4

REPORT INFORMATION
  Report Type: Spontaneous
  Country: JP (occurrence: JP)
  Receive Date: 20221122
  Receipt Date: 20231010
  Transmission Date: 20240110
  Serious: Yes (Other)
  Sender: FDA-Public Use
  Company Number: JP-SUN PHARMACEUTICAL INDUSTRIES LTD-2022R1-363189

PATIENT
  Age: 69 Year
  Sex: Female

DRUGS (3)
  1. ILUMYA [Suspect]
     Active Substance: TILDRAKIZUMAB-ASMN
     Indication: Psoriasis
     Dosage: 100 MILLIGRAM/DOSE, 1DOSE/MONTH
     Route: 058
     Dates: start: 20210902, end: 20220317
  2. OXAROL [Suspect]
     Active Substance: MAXACALCITOL
     Indication: Psoriasis
     Dosage: APPROPRIATELY
     Route: 062
     Dates: end: 20220317
  3. BETAMETHASONE\CALCIPOTRIENE [Concomitant]
     Active Substance: BETAMETHASONE\CALCIPOTRIENE
     Indication: Psoriasis
     Dosage: APPROPRIATELY
     Route: 062
     Dates: end: 20220317

REACTIONS (1)
  - Psoriatic arthropathy [Recovered/Resolved]

NARRATIVE: CASE EVENT DATE: 20220315
